FAERS Safety Report 19777738 (Version 1)
Quarter: 2021Q3

REPORT INFORMATION
  Report Type: Report from Study
  Country: None (occurrence: US)
  Receive Date: 20210902
  Receipt Date: 20210902
  Transmission Date: 20211014
  Serious: Yes (Other)
  Sender: FDA-Public Use
  Company Number: US-ABBVIE-21K-163-4045594-00

PATIENT
  Age: 54 Year
  Sex: Female
  Weight: 103.51 kg

DRUGS (5)
  1. COVID?19 VACCINE [Concomitant]
     Dosage: PFIZER
     Route: 030
     Dates: start: 20210402, end: 20210402
  2. COVID?19 VACCINE [Concomitant]
     Indication: COVID-19 IMMUNISATION
     Dosage: PFIZER
     Route: 030
     Dates: start: 20210310, end: 20210310
  3. HUMIRA [Suspect]
     Active Substance: ADALIMUMAB
     Indication: HIDRADENITIS
     Route: 058
     Dates: start: 202012
  4. HUMIRA [Suspect]
     Active Substance: ADALIMUMAB
     Indication: CROHN^S DISEASE
     Route: 058
     Dates: start: 2014, end: 202010
  5. MERCAPTOPURINE. [Concomitant]
     Active Substance: MERCAPTOPURINE
     Indication: CROHN^S DISEASE

REACTIONS (6)
  - Discomfort [Not Recovered/Not Resolved]
  - Foreign body in mouth [Not Recovered/Not Resolved]
  - Gun shot wound [Recovering/Resolving]
  - Emotional distress [Not Recovered/Not Resolved]
  - Wound haemorrhage [Unknown]
  - Speech disorder [Unknown]

NARRATIVE: CASE EVENT DATE: 20201023
